FAERS Safety Report 20589934 (Version 1)
Quarter: 2022Q1

REPORT INFORMATION
  Report Type: Spontaneous
  Country: JP (occurrence: JP)
  Receive Date: 20220314
  Receipt Date: 20220314
  Transmission Date: 20220423
  Serious: No
  Sender: FDA-Public Use
  Company Number: JP-GSKNCCC-Case-01439547_AE-55645

PATIENT
  Age: 46 Year
  Sex: Male

DRUGS (2)
  1. SOTROVIMAB [Suspect]
     Active Substance: SOTROVIMAB
     Indication: COVID-19
     Dosage: 500 MG/8 ML, 1 V WITH ISOTONIC SODIUM CHLORIDE SOLUTION 42 ML
     Dates: start: 20220306, end: 20220306
  2. SOTROVIMAB [Suspect]
     Active Substance: SOTROVIMAB
     Indication: COVID-19 prophylaxis

REACTIONS (1)
  - Urticaria [Unknown]
